FAERS Safety Report 6592824-X (Version None)
Quarter: 2010Q1

REPORT INFORMATION
  Report Type: 
  Country: None (occurrence: None)
  Receive Date: 20100212
  Receipt Date: 20100130
  Transmission Date: 20100710
  Serious: Yes (Hospitalization)
  Sender: FDA-Public Use
  Company Number: 2010AP000210

PATIENT
  Age: 54 Year
  Sex: Male

DRUGS (3)
  1. GABAPENTIN [Suspect]
     Indication: NEURALGIA
     Dosage: 300 MG;QD;PO; 600 MG;QD
     Route: 048
     Dates: end: 20030101
  2. VICODIN [Concomitant]
  3. TRAZODONE HCL [Concomitant]

REACTIONS (5)
  - DRUG LEVEL ABOVE THERAPEUTIC [None]
  - FALL [None]
  - HALLUCINATIONS, MIXED [None]
  - NEUROTOXICITY [None]
  - TOXIC ENCEPHALOPATHY [None]
